FAERS Safety Report 18186342 (Version 1)
Quarter: 2020Q3

REPORT INFORMATION
  Report Type: Spontaneous
  Country: US (occurrence: US)
  Receive Date: 20200822
  Receipt Date: 20200822
  Transmission Date: 20201103
  Serious: No
  Sender: FDA-Public Use
  Company Number: None

PATIENT
  Age: 36 Year
  Sex: Female
  Weight: 119.25 kg

DRUGS (3)
  1. CYTOMEL [Concomitant]
     Active Substance: LIOTHYRONINE SODIUM
  2. LEVOTHYROXINE 5 MCG TAB SAN [Suspect]
     Active Substance: LEVOTHYROXINE SODIUM
     Indication: HYPOTHYROIDISM
     Route: 048
     Dates: start: 20200820, end: 20200820
  3. MULTIVITAMIN [Concomitant]
     Active Substance: VITAMINS

REACTIONS (7)
  - Urticaria [None]
  - Product odour abnormal [None]
  - Swelling [None]
  - Pruritus [None]
  - Product formulation issue [None]
  - Product packaging issue [None]
  - Manufacturing issue [None]

NARRATIVE: CASE EVENT DATE: 20200820
